FAERS Safety Report 24602796 (Version 1)
Quarter: 2024Q4

REPORT INFORMATION
  Report Type: Spontaneous
  Country: PL (occurrence: PL)
  Receive Date: 20241111
  Receipt Date: 20241111
  Transmission Date: 20250114
  Serious: Yes (Other)
  Sender: AUROBINDO
  Company Number: PL-AUROBINDO-AUR-APL-2024-054151

PATIENT
  Age: 6 Month
  Sex: Female

DRUGS (2)
  1. CARBOPLATIN [Suspect]
     Active Substance: CARBOPLATIN
     Indication: Neuroblastoma
     Dosage: UNK UNK, CYCLICAL (4 CYCLES OF CHEMOTHERAPY)
     Route: 065
  2. ETOPOSIDE [Suspect]
     Active Substance: ETOPOSIDE
     Indication: Neuroblastoma
     Dosage: UNK
     Route: 065

REACTIONS (6)
  - Neutropenia [Unknown]
  - Upper respiratory tract infection [Unknown]
  - Decreased appetite [Unknown]
  - Vomiting [Unknown]
  - Lip swelling [Unknown]
  - General physical health deterioration [Unknown]
